FAERS Safety Report 6119213-6 (Version None)
Quarter: 2009Q1

REPORT INFORMATION
  Report Type: 
  Country: None (occurrence: None)
  Receive Date: 20090311
  Receipt Date: 20090226
  Transmission Date: 20090719
  Serious: Yes (Life-Threatening, Hospitalization)
  Sender: FDA-Public Use
  Company Number: DSA_33288_2009

PATIENT
  Age: 83 Year
  Sex: Male

DRUGS (17)
  1. ENALAPRIL MALEATE [Suspect]
     Indication: DRUG USE FOR UNKNOWN INDICATION
     Dosage: (10 MG BID ORAL)
     Route: 048
  2. INSULIN ACTRAPID /00646001/ (INSULIN ACTRAPID - INSULIN HUMAN ) (NOT S [Suspect]
     Indication: DRUG USE FOR UNKNOWN INDICATION
     Dosage: (22-10-20 IU)
     Route: 015
  3. PROTAPHANE /00646002/ (PROTAPHANE - INSULIN HUMAN ISOPANE) (NOT SPECIF [Suspect]
     Indication: DRUG USE FOR UNKNOWN INDICATION
     Dosage: (20 IU QD)
  4. ACETYLCYSTEINE [Concomitant]
  5. ALLOPURINOL [Concomitant]
  6. DIGITOXIN [Concomitant]
  7. NOVALGIN /00039501/ [Concomitant]
  8. BEROTEC [Concomitant]
  9. OXIS /00958002/ [Concomitant]
  10. FURORESE /00032602/ [Concomitant]
  11. HYDROCHLOROTHIAZIDE [Concomitant]
  12. LEVOTHYROXINE SODIUM [Concomitant]
  13. FALITHROM [Concomitant]
  14. SIMVASTATIN [Concomitant]
  15. SPIRIVA [Concomitant]
  16. TRAMADOL HCL [Concomitant]
  17. FALICARD [Concomitant]

REACTIONS (3)
  - DIARRHOEA [None]
  - LOSS OF CONSCIOUSNESS [None]
  - SHOCK HYPOGLYCAEMIC [None]
